FAERS Safety Report 12623965 (Version 2)
Quarter: 2017Q3

REPORT INFORMATION
  Report Type: Report from Study
  Country: US (occurrence: US)
  Receive Date: 20160804
  Receipt Date: 20170828
  Transmission Date: 20171127
  Serious: Yes (Hospitalization)
  Sender: FDA-Public Use
  Company Number: US-AMGEN-USASL2016099986

PATIENT
  Age: 82 Year
  Sex: Female

DRUGS (7)
  1. PROCRIT [Suspect]
     Active Substance: ERYTHROPOIETIN
     Indication: NEPHROGENIC ANAEMIA
     Dosage: UNK UNK, QMO
     Route: 065
     Dates: start: 20150410
  2. HYDRALAZINE [Concomitant]
     Active Substance: HYDRALAZINE HYDROCHLORIDE
     Dosage: 25 MG, UNK
  3. CLONIDINE HYDROCHLORIDE W/CHLORTHALIDONE [Concomitant]
     Dosage: 0.2 MG / 15 MG
  4. EPINEPHRINE. [Concomitant]
     Active Substance: EPINEPHRINE
     Dosage: 0.3 MG/0.3 ML (1:1000)
  5. SIMVASTATIN. [Concomitant]
     Active Substance: SIMVASTATIN
     Dosage: 20 MG, UNK
  6. NORVASC [Concomitant]
     Active Substance: AMLODIPINE BESYLATE
     Dosage: 5 MG, UNK
  7. BENAZEPRIL [Concomitant]
     Active Substance: BENAZEPRIL HYDROCHLORIDE
     Dosage: 20 MG, UNK

REACTIONS (7)
  - Red blood cell count decreased [Unknown]
  - Decreased appetite [Unknown]
  - Heart rate irregular [Unknown]
  - Abdominal pain [Unknown]
  - Weight decreased [Unknown]
  - Asthenia [Unknown]
  - Fatigue [Unknown]
